FAERS Safety Report 25922893 (Version 1)
Quarter: 2025Q4

REPORT INFORMATION
  Report Type: Spontaneous
  Country: TH (occurrence: TH)
  Receive Date: 20251015
  Receipt Date: 20251015
  Transmission Date: 20260118
  Serious: Yes (Other)
  Sender: NOVARTIS
  Company Number: TH-002147023-NVSC2025TH152514

PATIENT
  Age: 40 Year
  Sex: Male

DRUGS (62)
  1. SACUBITRIL\VALSARTAN [Suspect]
     Active Substance: SACUBITRIL\VALSARTAN
     Indication: Product used for unknown indication
     Dosage: UNK
     Route: 065
  2. SACUBITRIL\VALSARTAN [Suspect]
     Active Substance: SACUBITRIL\VALSARTAN
     Dosage: UNK (50)
     Route: 065
     Dates: start: 20240504
  3. SACUBITRIL\VALSARTAN [Suspect]
     Active Substance: SACUBITRIL\VALSARTAN
     Dosage: UNK (100)
     Route: 065
     Dates: start: 20240509
  4. SACUBITRIL\VALSARTAN [Suspect]
     Active Substance: SACUBITRIL\VALSARTAN
     Dosage: UNK (200)
     Route: 065
     Dates: start: 20240606
  5. SACUBITRIL\VALSARTAN [Suspect]
     Active Substance: SACUBITRIL\VALSARTAN
     Dosage: UNK (200)
     Route: 065
     Dates: start: 20240829
  6. SACUBITRIL\VALSARTAN [Suspect]
     Active Substance: SACUBITRIL\VALSARTAN
     Dosage: UNK (400)
     Route: 065
     Dates: start: 20241007
  7. SACUBITRIL\VALSARTAN [Suspect]
     Active Substance: SACUBITRIL\VALSARTAN
     Dosage: UNK (400)
     Route: 065
     Dates: start: 20241224
  8. SACUBITRIL\VALSARTAN [Suspect]
     Active Substance: SACUBITRIL\VALSARTAN
     Dosage: UNK (400)
     Route: 065
     Dates: start: 20250313
  9. SACUBITRIL\VALSARTAN [Suspect]
     Active Substance: SACUBITRIL\VALSARTAN
     Dosage: UNK (400)
     Route: 065
     Dates: start: 20250611
  10. ASPIRIN [Concomitant]
     Active Substance: ASPIRIN
     Indication: Product used for unknown indication
     Dosage: UNK
     Route: 065
  11. ASPIRIN [Concomitant]
     Active Substance: ASPIRIN
     Dosage: UNK (81)
     Route: 065
     Dates: start: 20240504
  12. ASPIRIN [Concomitant]
     Active Substance: ASPIRIN
     Dosage: UNK (81)
     Route: 065
     Dates: start: 20240509
  13. ASPIRIN [Concomitant]
     Active Substance: ASPIRIN
     Dosage: UNK (81)
     Route: 065
     Dates: start: 20240829
  14. ASPIRIN [Concomitant]
     Active Substance: ASPIRIN
     Dosage: UNK (81)
     Route: 065
     Dates: start: 20241007
  15. ASPIRIN [Concomitant]
     Active Substance: ASPIRIN
     Dosage: UNK (81)
     Route: 065
     Dates: start: 20241224
  16. ASPIRIN [Concomitant]
     Active Substance: ASPIRIN
     Dosage: UNK (81)
     Route: 065
     Dates: start: 20250313
  17. ASPIRIN [Concomitant]
     Active Substance: ASPIRIN
     Dosage: UNK (81)
     Route: 065
     Dates: start: 20250611
  18. ATORVASTATIN [Concomitant]
     Active Substance: ATORVASTATIN
     Indication: Product used for unknown indication
     Dosage: UNK (40)
     Route: 065
     Dates: start: 20240218
  19. ATORVASTATIN [Concomitant]
     Active Substance: ATORVASTATIN
     Dosage: UNK (40)
     Route: 065
     Dates: start: 20240320
  20. ATORVASTATIN [Concomitant]
     Active Substance: ATORVASTATIN
     Dosage: UNK (40)
     Route: 065
     Dates: start: 20240504
  21. ATORVASTATIN [Concomitant]
     Active Substance: ATORVASTATIN
     Dosage: UNK (40)
     Route: 065
     Dates: start: 20240509
  22. ATORVASTATIN [Concomitant]
     Active Substance: ATORVASTATIN
     Dosage: UNK (40)
     Route: 065
     Dates: start: 20240606
  23. ATORVASTATIN [Concomitant]
     Active Substance: ATORVASTATIN
     Dosage: UNK (40)
     Route: 065
     Dates: start: 20240829
  24. ATORVASTATIN [Concomitant]
     Active Substance: ATORVASTATIN
     Dosage: UNK (40)
     Route: 065
     Dates: start: 20241007
  25. ATORVASTATIN [Concomitant]
     Active Substance: ATORVASTATIN
     Dosage: UNK (40)
     Route: 065
     Dates: start: 20241224
  26. ATORVASTATIN [Concomitant]
     Active Substance: ATORVASTATIN
     Dosage: UNK (40)
     Route: 065
     Dates: start: 20250313
  27. ATORVASTATIN [Concomitant]
     Active Substance: ATORVASTATIN
     Dosage: UNK (40)
     Route: 065
     Dates: start: 20250611
  28. HYDRALAZINE [Concomitant]
     Active Substance: HYDRALAZINE HYDROCHLORIDE
     Indication: Product used for unknown indication
     Dosage: UNK (200)
     Route: 065
     Dates: start: 20240218
  29. HYDRALAZINE [Concomitant]
     Active Substance: HYDRALAZINE HYDROCHLORIDE
     Dosage: UNK (200)
     Route: 065
     Dates: start: 20240320
  30. HYDRALAZINE [Concomitant]
     Active Substance: HYDRALAZINE HYDROCHLORIDE
     Dosage: UNK (200)
     Route: 065
     Dates: start: 20240504
  31. HYDRALAZINE [Concomitant]
     Active Substance: HYDRALAZINE HYDROCHLORIDE
     Dosage: UNK (200)
     Route: 065
     Dates: start: 20240509
  32. BISOPROLOL [Concomitant]
     Active Substance: BISOPROLOL
     Indication: Product used for unknown indication
     Dosage: UNK
     Route: 065
  33. BISOPROLOL [Concomitant]
     Active Substance: BISOPROLOL
     Dosage: UNK (5)
     Route: 065
     Dates: start: 20240509
  34. BISOPROLOL [Concomitant]
     Active Substance: BISOPROLOL
     Dosage: UNK (5)
     Route: 065
     Dates: start: 20240606
  35. BISOPROLOL [Concomitant]
     Active Substance: BISOPROLOL
     Dosage: UNK (5)
     Route: 065
     Dates: start: 20240829
  36. BISOPROLOL [Concomitant]
     Active Substance: BISOPROLOL
     Dosage: UNK (5)
     Route: 065
     Dates: start: 20241007
  37. BISOPROLOL [Concomitant]
     Active Substance: BISOPROLOL
     Dosage: UNK (10)
     Route: 065
     Dates: start: 20241224
  38. BISOPROLOL [Concomitant]
     Active Substance: BISOPROLOL
     Dosage: UNK (10)
     Route: 065
     Dates: start: 20250313
  39. BISOPROLOL [Concomitant]
     Active Substance: BISOPROLOL
     Dosage: UNK (10)
     Route: 065
     Dates: start: 20250611
  40. SPIRONOLACTONE [Concomitant]
     Active Substance: SPIRONOLACTONE
     Indication: Product used for unknown indication
     Dosage: UNK
     Route: 065
  41. SPIRONOLACTONE [Concomitant]
     Active Substance: SPIRONOLACTONE
     Dosage: UNK (25)
     Route: 065
     Dates: start: 20240606
  42. SPIRONOLACTONE [Concomitant]
     Active Substance: SPIRONOLACTONE
     Dosage: UNK (25)
     Route: 065
     Dates: start: 20240829
  43. SPIRONOLACTONE [Concomitant]
     Active Substance: SPIRONOLACTONE
     Dosage: UNK (25)
     Route: 065
     Dates: start: 20241007
  44. SPIRONOLACTONE [Concomitant]
     Active Substance: SPIRONOLACTONE
     Dosage: UNK (25)
     Route: 065
     Dates: start: 20241224
  45. SPIRONOLACTONE [Concomitant]
     Active Substance: SPIRONOLACTONE
     Dosage: UNK (25)
     Route: 065
     Dates: start: 20250313
  46. SPIRONOLACTONE [Concomitant]
     Active Substance: SPIRONOLACTONE
     Dosage: UNK (25)
     Route: 065
     Dates: start: 20250611
  47. DAPAGLIFLOZIN [Concomitant]
     Active Substance: DAPAGLIFLOZIN
     Indication: Product used for unknown indication
     Dosage: UNK
     Route: 065
  48. DAPAGLIFLOZIN [Concomitant]
     Active Substance: DAPAGLIFLOZIN
     Dosage: UNK (10)
     Route: 065
     Dates: start: 20240504
  49. DAPAGLIFLOZIN [Concomitant]
     Active Substance: DAPAGLIFLOZIN
     Dosage: UNK (10)
     Route: 065
     Dates: start: 20240509
  50. DAPAGLIFLOZIN [Concomitant]
     Active Substance: DAPAGLIFLOZIN
     Dosage: UNK (10)
     Route: 065
     Dates: start: 20240606
  51. DAPAGLIFLOZIN [Concomitant]
     Active Substance: DAPAGLIFLOZIN
     Dosage: UNK (10)
     Route: 065
     Dates: start: 20240829
  52. DAPAGLIFLOZIN [Concomitant]
     Active Substance: DAPAGLIFLOZIN
     Dosage: UNK (10)
     Route: 065
     Dates: start: 20241007
  53. DAPAGLIFLOZIN [Concomitant]
     Active Substance: DAPAGLIFLOZIN
     Dosage: UNK (10)
     Route: 065
     Dates: start: 20241224
  54. DAPAGLIFLOZIN [Concomitant]
     Active Substance: DAPAGLIFLOZIN
     Dosage: UNK (10)
     Route: 065
     Dates: start: 20250313
  55. DAPAGLIFLOZIN [Concomitant]
     Active Substance: DAPAGLIFLOZIN
     Dosage: UNK (10)
     Route: 065
     Dates: start: 20250611
  56. ENALAPRIL [Concomitant]
     Active Substance: ENALAPRIL
     Indication: Product used for unknown indication
     Dosage: UNK (10)
     Route: 065
     Dates: start: 20240320
  57. CARVEDILOL [Concomitant]
     Active Substance: CARVEDILOL
     Indication: Product used for unknown indication
     Dosage: UNK (6.25)
     Route: 065
     Dates: start: 20240218
  58. CARVEDILOL [Concomitant]
     Active Substance: CARVEDILOL
     Dosage: UNK (12.5)
     Route: 065
     Dates: start: 20240320
  59. Isdn [Concomitant]
     Indication: Product used for unknown indication
     Dosage: UNK (30)
     Route: 065
     Dates: start: 20240218
  60. Isdn [Concomitant]
     Dosage: UNK (30)
     Route: 065
     Dates: start: 20240320
  61. FUROSEMIDE [Concomitant]
     Active Substance: FUROSEMIDE
     Indication: Product used for unknown indication
     Dosage: UNK (40)
     Route: 065
     Dates: start: 20240218
  62. FUROSEMIDE [Concomitant]
     Active Substance: FUROSEMIDE
     Dosage: UNK (20)
     Route: 065
     Dates: start: 20240320

REACTIONS (9)
  - Cardiac failure chronic [Unknown]
  - Basal ganglia haemorrhage [Unknown]
  - Hypertension [Recovering/Resolving]
  - Blood urea increased [Recovering/Resolving]
  - Blood creatinine increased [Recovering/Resolving]
  - Blood potassium decreased [Recovering/Resolving]
  - Blood bicarbonate decreased [Recovering/Resolving]
  - Blood cholesterol decreased [Unknown]
  - Dysarthria [Unknown]

NARRATIVE: CASE EVENT DATE: 20241007
